FAERS Safety Report 8963259 (Version 1)
Quarter: 2012Q4

REPORT INFORMATION
  Report Type: 
  Country: US (occurrence: US)
  Receive Date: 20121213
  Receipt Date: 20121213
  Transmission Date: 20130627
  Serious: No
  Sender: FDA-Public Use
  Company Number: US-PFIZER INC-2012315723

PATIENT
  Age: 83 Year
  Sex: Female
  Weight: 61.22 kg

DRUGS (1)
  1. ADVIL PM [Suspect]
     Indication: DIFFICULTY SLEEPING
     Dosage: 200/38 mg, UNK
     Dates: start: 2012

REACTIONS (1)
  - Constipation [Not Recovered/Not Resolved]
